FAERS Safety Report 7290952-7 (Version None)
Quarter: 2011Q1

REPORT INFORMATION
  Report Type: 
  Country: None (occurrence: None)
  Receive Date: 20110214
  Receipt Date: 20110203
  Transmission Date: 20110831
  Serious: Yes (Hospitalization)
  Sender: FDA-Public Use
  Company Number: CA-JNJFOC-20110202083

PATIENT
  Sex: Female
  Weight: 65.6 kg

DRUGS (3)
  1. REMICADE [Suspect]
     Indication: CROHN'S DISEASE
     Dosage: 25TH INFUSION
     Route: 042
  2. REMICADE [Suspect]
     Dosage: 23 DOSES ON UNSPECIFIED DATES
     Route: 042
  3. REMICADE [Suspect]
     Dosage: FIRST INFUSION
     Route: 042

REACTIONS (2)
  - VOMITING [None]
  - ABDOMINAL PAIN [None]
